FAERS Safety Report 7984263-1 (Version None)
Quarter: 2011Q4

REPORT INFORMATION
  Report Type: 
  Country: None (occurrence: None)
  Receive Date: 20111214
  Receipt Date: 20111201
  Transmission Date: 20120403
  Serious: Yes (Hospitalization)
  Sender: FDA-Public Use
  Company Number: 1000026104

PATIENT
  Age: 53 Year
  Sex: Male

DRUGS (14)
  1. TOREM (TORASEMIDE SODIUM)(TABLETS)(TORASEMIDE SODIUM) [Concomitant]
  2. ESCITALOPRAM OXALATE [Suspect]
     Indication: DEPRESSION
     Dosage: 10 MG (10 MG, 1 IN 1 D), ORAL
     Route: 048
  3. DANCOR (NICORANDIL) (TABLETS) (NICORANDIL) [Concomitant]
  4. FERINJECT(FERRIC CARBOXYMALTOSE)(FERRIC CARBOXYMALTOSE) [Concomitant]
  5. ASPIRIN [Suspect]
     Dosage: 100 MG (100 MG, 1 IN 1 D),ORAL
     Route: 048
     Dates: end: 20110901
  6. IMOVAN (ZOPICLONE)(TABLETS)(ZOPICLONE) [Concomitant]
  7. LYRICA (PREGABALIN) (TABLETS) (PREGABALIN) [Concomitant]
  8. NOVORAPID (INSULIN ASPART)(INSULIN ASPART) [Concomitant]
  9. VITAMIN D (COLECALCIFEROL)(COLECALCIFEROL) [Concomitant]
  10. PANTOZOL (PANTOPRAZOLE SODIUM SESQUIHYDRATE)(TABLETS)(PANTOPRAZOLE SOD [Concomitant]
  11. RECORMON (EPOETIN BETA)(EPOETIN BETA) [Concomitant]
  12. CALCITROL (CALCITRIOL)(CALCITRIOL) [Concomitant]
  13. ISOPTIN (VERAPAMIL HYDROCHLORIDE)(TABLETS)(VERAPAMIL HYDROCHLORIDE) [Concomitant]
  14. LEVEMIR [Concomitant]

REACTIONS (1)
  - CEREBRAL HAEMORRHAGE [None]
